FAERS Safety Report 8190238-2 (Version None)
Quarter: 2012Q1

REPORT INFORMATION
  Report Type: 
  Country: None (occurrence: None)
  Receive Date: 20120305
  Receipt Date: 20120222
  Transmission Date: 20120608
  Serious: Yes (Other)
  Sender: FDA-Public Use
  Company Number: JPI-P-019967

PATIENT
  Age: 31 Year
  Sex: Female
  Weight: 65.318 kg

DRUGS (3)
  1. SODIUM OXYBATE [Suspect]
     Indication: NARCOLEPSY
     Dosage: , ORAL 9 GM (4.5 GM, 2 IN 1 D), ORAL
     Route: 048
     Dates: start: 20100701
  2. SODIUM OXYBATE [Suspect]
     Indication: SOMNOLENCE
     Dosage: , ORAL 9 GM (4.5 GM, 2 IN 1 D), ORAL
     Route: 048
     Dates: start: 20100701
  3. MOMETASONE FUROATE MONOHYDRATE [Concomitant]

REACTIONS (3)
  - HEADACHE [None]
  - NASAL POLYPECTOMY [None]
  - DRUG INEFFECTIVE [None]
